FAERS Safety Report 5255371-3 (Version None)
Quarter: 2007Q1

REPORT INFORMATION
  Report Type: 
  Country: None (occurrence: None)
  Receive Date: 20070305
  Receipt Date: 20070222
  Transmission Date: 20070707
  Serious: Yes (Hospitalization)
  Sender: FDA-Public Use
  Company Number: FR-ROCHE-484319

PATIENT
  Age: 83 Year
  Sex: Male

DRUGS (6)
  1. RIVOTRIL [Suspect]
     Indication: DRUG USE FOR UNKNOWN INDICATION
     Route: 048
     Dates: end: 20070116
  2. EQUANIL [Suspect]
     Indication: DRUG USE FOR UNKNOWN INDICATION
     Route: 048
     Dates: end: 20070113
  3. STABLON [Concomitant]
  4. PERMIXON [Concomitant]
  5. DOLIPRANE [Concomitant]
  6. PLAVIX [Concomitant]

REACTIONS (2)
  - BALANCE DISORDER [None]
  - MALAISE [None]
